FAERS Safety Report 15875629 (Version 1)
Quarter: 2019Q1

REPORT INFORMATION
  Report Type: Other
  Country: US (occurrence: US)
  Receive Date: 20190126
  Receipt Date: 20190126
  Transmission Date: 20190417
  Serious: No
  Sender: FDA-Public Use
  Company Number: US-ACORDA-ACO_155714_2018

PATIENT
  Sex: Female

DRUGS (2)
  1. REBIF [Suspect]
     Active Substance: INTERFERON BETA-1A
     Indication: PRODUCT USED FOR UNKNOWN INDICATION
     Dosage: 44 MICROGRAM VIA INJECTION
     Dates: start: 2010
  2. AMPYRA [Suspect]
     Active Substance: DALFAMPRIDINE
     Indication: MULTIPLE SCLEROSIS
     Dosage: 10 MILLIGRAM, Q 12 HRS
     Route: 065

REACTIONS (7)
  - Injection site erythema [Unknown]
  - Pain [Unknown]
  - Headache [Unknown]
  - Influenza like illness [Unknown]
  - Pharyngitis streptococcal [Unknown]
  - Injection site pruritus [Unknown]
  - Injection site mass [Unknown]
